FAERS Safety Report 12874210 (Version 2)
Quarter: 2021Q2

REPORT INFORMATION
  Report Type: Spontaneous
  Country: IT (occurrence: IT)
  Receive Date: 20161021
  Receipt Date: 20210503
  Transmission Date: 20210716
  Serious: Yes (Death, Hospitalization, Other)
  Sender: FDA-Public Use
  Company Number: PHHY2016IT141890

PATIENT
  Age: 44 Year
  Sex: Female

DRUGS (3)
  1. CEFTRIAXONE. [Suspect]
     Active Substance: CEFTRIAXONE
     Indication: SNEEZING
  2. CEFTRIAXONE. [Suspect]
     Active Substance: CEFTRIAXONE
     Indication: COUGH
     Dosage: UNK
     Route: 030
  3. CEFTRIAXONE. [Suspect]
     Active Substance: CEFTRIAXONE
     Indication: OROPHARYNGEAL PAIN

REACTIONS (7)
  - Dyspnoea [Fatal]
  - Skin warm [Fatal]
  - Cardiopulmonary failure [Fatal]
  - Anaphylactic shock [Fatal]
  - Multiple organ dysfunction syndrome [Fatal]
  - Foaming at mouth [Fatal]
  - Wheezing [Fatal]
